FAERS Safety Report 9550049 (Version 2)
Quarter: 2015Q2

REPORT INFORMATION
  Report Type: Spontaneous
  Country: US (occurrence: US)
  Receive Date: 20130924
  Receipt Date: 20150518
  Transmission Date: 20150821
  Serious: Yes (Death, Hospitalization)
  Sender: FDA-Public Use
  Company Number: PHHY2013US104833

PATIENT
  Age: 23 Year
  Sex: Male

DRUGS (4)
  1. HEROIN [Suspect]
     Active Substance: DIACETYLMORPHINE
     Indication: PRODUCT USED FOR UNKNOWN INDICATION
     Route: 065
  2. METHADONE [Suspect]
     Active Substance: METHADONE HYDROCHLORIDE
     Indication: PRODUCT USED FOR UNKNOWN INDICATION
     Dosage: 40 MG, UNK
     Route: 065
  3. ALPRAZOLAM. [Suspect]
     Active Substance: ALPRAZOLAM
     Indication: PRODUCT USED FOR UNKNOWN INDICATION
     Dosage: 3 MG, UNK
     Route: 045
  4. ALCOHOL. [Suspect]
     Active Substance: ALCOHOL
     Indication: PRODUCT USED FOR UNKNOWN INDICATION
     Route: 065

REACTIONS (15)
  - Toxicity to various agents [Fatal]
  - Pupillary reflex impaired [Unknown]
  - Unresponsive to stimuli [Unknown]
  - Pulse absent [Unknown]
  - Pulmonary oedema [Unknown]
  - Loss of consciousness [Unknown]
  - Multi-organ failure [Unknown]
  - Rhabdomyolysis [Unknown]
  - Pupil fixed [Unknown]
  - Brain injury [Unknown]
  - Dyspnoea [Unknown]
  - Substance abuse [Unknown]
  - Corneal reflex decreased [Unknown]
  - Acute kidney injury [Unknown]
  - Central nervous system necrosis [Unknown]
